FAERS Safety Report 5772904-9 (Version None)
Quarter: 2008Q2

REPORT INFORMATION
  Report Type: 
  Country: None (occurrence: None)
  Receive Date: 20080613
  Receipt Date: 20080530
  Transmission Date: 20081010
  Serious: Yes (Other)
  Sender: FDA-Public Use
  Company Number: US-PFIZER INC-2008046126

PATIENT
  Sex: Female
  Weight: 53.5 kg

DRUGS (7)
  1. XANAX [Suspect]
     Indication: PANIC ATTACK
  2. XANAX [Suspect]
     Indication: ANXIETY
  3. VALIUM [Concomitant]
     Indication: ANXIETY
  4. INDERAL [Concomitant]
  5. PEPCID [Concomitant]
  6. TYLENOL [Concomitant]
  7. ALLEGRA [Concomitant]
     Indication: SEASONAL ALLERGY

REACTIONS (8)
  - AGEUSIA [None]
  - BURNING MOUTH SYNDROME [None]
  - COUGH [None]
  - GASTROOESOPHAGEAL REFLUX DISEASE [None]
  - HYPOAESTHESIA ORAL [None]
  - NEURITIS [None]
  - PARAESTHESIA [None]
  - PARAESTHESIA ORAL [None]
